FAERS Safety Report 16245990 (Version 1)
Quarter: 2019Q2

REPORT INFORMATION
  Report Type: Spontaneous
  Country: US (occurrence: US)
  Receive Date: 20190426
  Receipt Date: 20190426
  Transmission Date: 20190711
  Serious: Yes (Hospitalization)
  Sender: FDA-Public Use
  Company Number: US-CELGENEUS-USA-20190407998

PATIENT
  Age: 84 Year
  Sex: Male

DRUGS (5)
  1. LOVENOX [Concomitant]
     Active Substance: ENOXAPARIN SODIUM
     Indication: THROMBOSIS PROPHYLAXIS
     Dosage: 100 MILLIGRAM
     Route: 030
     Dates: start: 20190402, end: 20190406
  2. PROTAMINE [Concomitant]
     Active Substance: PROTAMINE
     Indication: HAEMORRHAGE
     Dosage: 50 MILLIGRAM
     Route: 041
     Dates: start: 20190407, end: 20190407
  3. AZACITIDINE. [Suspect]
     Active Substance: AZACITIDINE
     Indication: LUNG NEOPLASM MALIGNANT
     Dosage: 66.75 MILLIGRAM
     Route: 058
     Dates: start: 20170911, end: 20180306
  4. NIVOLUMAB [Suspect]
     Active Substance: NIVOLUMAB
     Indication: LUNG NEOPLASM MALIGNANT
     Dosage: 240 MILLIGRAM
     Route: 041
     Dates: start: 20170911, end: 20190402
  5. ENTINOSTAT [Suspect]
     Active Substance: ENTINOSTAT
     Indication: LUNG NEOPLASM MALIGNANT
     Dosage: 5 MILLIGRAM
     Route: 048
     Dates: start: 20170911, end: 20180306

REACTIONS (1)
  - Confusional state [Recovered/Resolved with Sequelae]

NARRATIVE: CASE EVENT DATE: 20190407
